FAERS Safety Report 21685561 (Version 2)
Quarter: 2025Q2

REPORT INFORMATION
  Report Type: Spontaneous
  Country: US (occurrence: US)
  Receive Date: 20221206
  Receipt Date: 20250520
  Transmission Date: 20250716
  Serious: No
  Sender: COHERUS
  Company Number: US-COHERUS BIOSCIENCES,INC-2022-COH-US000018

PATIENT

DRUGS (5)
  1. UDENYCA [Suspect]
     Active Substance: PEGFILGRASTIM-CBQV
     Indication: Neutropenia
     Dates: start: 20211021, end: 2021
  2. UDENYCA [Suspect]
     Active Substance: PEGFILGRASTIM-CBQV
     Dates: start: 2021, end: 20220113
  3. BENDAMUSTINE [Concomitant]
     Active Substance: BENDAMUSTINE
     Dates: start: 2021, end: 202201
  4. RITUXIMAB [Concomitant]
     Active Substance: RITUXIMAB
     Dates: start: 2021, end: 202201
  5. ZOFRAN [Concomitant]
     Active Substance: ONDANSETRON HYDROCHLORIDE
     Dates: start: 2021, end: 202201

REACTIONS (5)
  - Feeling abnormal [Recovered/Resolved]
  - Eye contusion [Unknown]
  - Urine flow decreased [Unknown]
  - Swelling [Unknown]
  - Swelling face [Unknown]

NARRATIVE: CASE EVENT DATE: 20210101
